FAERS Safety Report 6255770-7 (Version None)
Quarter: 2009Q3

REPORT INFORMATION
  Report Type: 
  Country: None (occurrence: None)
  Receive Date: 20090701
  Receipt Date: 20090624
  Transmission Date: 20100115
  Serious: No
  Sender: FDA-Public Use
  Company Number: SPL200900055

PATIENT
  Age: 39 Year
  Sex: Female

DRUGS (1)
  1. LUBIPROSTONE OR PLACEBO [Suspect]
     Indication: CONSTIPATION
     Dosage: 48 UG OR 0 UG, ORAL
     Route: 048
     Dates: start: 20090616, end: 20090624

REACTIONS (2)
  - DRUG EXPOSURE DURING PREGNANCY [None]
  - PREGNANCY [None]
